FAERS Safety Report 4894504-5 (Version None)
Quarter: 2006Q1

REPORT INFORMATION
  Report Type: 
  Country: None (occurrence: None)
  Receive Date: 20060127
  Receipt Date: 20051222
  Transmission Date: 20060701
  Serious: Yes (Life-Threatening)
  Sender: FDA-Public Use
  Company Number: HQWYE156627DEC05

PATIENT
  Sex: Female

DRUGS (11)
  1. ENBREL [Suspect]
     Indication: RHEUMATOID ARTHRITIS
     Dosage: NOT SPECIFIED
     Route: 058
     Dates: start: 20050916
  2. ISONIAZID [Concomitant]
     Dates: start: 20050907
  3. SODIUM ALGINATE [Concomitant]
  4. PYRIDOXAL PHOSPHAGE [Concomitant]
  5. ALLOPURINOL [Concomitant]
  6. LACTOBACILLUS ACIDOPHILUS [Concomitant]
  7. LACTOBACILLUS BIFIDUS, LYOPHILIZED [Concomitant]
  8. STREPTOCOCCUS FAECALIS [Concomitant]
  9. LOSARTAN POTASSIUM [Concomitant]
  10. LANSOPRAZOLE [Concomitant]
  11. ERYTHROMYCIN [Concomitant]

REACTIONS (3)
  - BACTERIAL TOXAEMIA [None]
  - ENDOTOXIC SHOCK [None]
  - SERRATIA INFECTION [None]
